FAERS Safety Report 26134773 (Version 1)
Quarter: 2025Q4

REPORT INFORMATION
  Report Type: Spontaneous
  Country: JP (occurrence: JP)
  Receive Date: 20251209
  Receipt Date: 20251209
  Transmission Date: 20260117
  Serious: Yes (Hospitalization)
  Sender: ROCHE
  Company Number: JP-CHUGAI-2025029293

PATIENT
  Age: 5 Decade
  Sex: Female
  Weight: 45 kg

DRUGS (6)
  1. ENSPRYNG [Suspect]
     Active Substance: SATRALIZUMAB-MWGE
     Indication: Neuromyelitis optica spectrum disorder
     Dosage: UNK
     Route: 058
     Dates: start: 20240617
  2. PREDNISOLONE [Concomitant]
     Active Substance: PREDNISOLONE
  3. ESOMEPRAZOLE MAGNESIUM [Concomitant]
     Active Substance: ESOMEPRAZOLE MAGNESIUM
  4. ATOVAQUONE [Concomitant]
     Active Substance: ATOVAQUONE
  5. ELDECALCITOL [Concomitant]
     Active Substance: ELDECALCITOL
  6. MINODRONIC ACID [Concomitant]
     Active Substance: MINODRONIC ACID

REACTIONS (1)
  - Gastroenteritis viral [Recovered/Resolved]

NARRATIVE: CASE EVENT DATE: 20250615
